FAERS Safety Report 4408178-0 (Version None)
Quarter: 2004Q3

REPORT INFORMATION
  Report Type: 
  Country: None (occurrence: None)
  Receive Date: 20040722
  Receipt Date: 20040322
  Transmission Date: 20050211
  Serious: Yes (Other)
  Sender: FDA-Public Use
  Company Number: GB-JNJFOC-20040304776

PATIENT
  Age: 63 Year
  Sex: Female
  Weight: 69.2 kg

DRUGS (3)
  1. REMICADE [Suspect]
     Indication: RHEUMATOID ARTHRITIS
     Dosage: 210 MG, INTRAVENOUS
     Route: 042
  2. METHOTREXATE [Suspect]
     Indication: RHEUMATOID ARTHRITIS
     Dosage: 15 MG, ORAL
     Route: 048
  3. CO-DYDRAMOL (PARAMOL-118) [Concomitant]

REACTIONS (3)
  - DRUG INTERACTION [None]
  - PRURITUS [None]
  - URTICARIA [None]
